FAERS Safety Report 5468316-8 (Version None)
Quarter: 2007Q3

REPORT INFORMATION
  Report Type: 
  Country: None (occurrence: None)
  Receive Date: 20070926
  Receipt Date: 20070918
  Transmission Date: 20080115
  Serious: Yes (Hospitalization)
  Sender: FDA-Public Use
  Company Number: A0663714A

PATIENT
  Age: 76 Year
  Sex: Female

DRUGS (4)
  1. ADVAIR DISKUS 100/50 [Suspect]
     Indication: RESPIRATORY DISORDER
     Dosage: 1PUFF TWICE PER DAY
     Route: 055
     Dates: start: 20070301, end: 20070529
  2. ADVAIR DISKUS 100/50 [Suspect]
     Dosage: 1PUFF TWICE PER DAY
     Route: 055
     Dates: start: 20070530
  3. SPIRIVA [Suspect]
     Indication: DRUG USE FOR UNKNOWN INDICATION
     Route: 055
  4. SINGULAIR [Concomitant]

REACTIONS (9)
  - CONJUNCTIVITIS [None]
  - DYSPNOEA [None]
  - OCULAR HYPERAEMIA [None]
  - ORAL DISORDER [None]
  - PNEUMONIA PRIMARY ATYPICAL [None]
  - PRURITUS [None]
  - SWELLING FACE [None]
  - TONGUE DISORDER [None]
  - URTICARIA [None]
